FAERS Safety Report 8321740-8 (Version None)
Quarter: 2012Q2

REPORT INFORMATION
  Report Type: 
  Country: None (occurrence: None)
  Receive Date: 20120430
  Receipt Date: 20120423
  Transmission Date: 20120825
  Serious: Yes (Death)
  Sender: FDA-Public Use
  Company Number: PHEH2012US008676

PATIENT
  Sex: Female

DRUGS (6)
  1. GILENYA [Suspect]
     Indication: RELAPSING-REMITTING MULTIPLE SCLEROSIS
     Dosage: 0.5 MG, QD
     Route: 048
     Dates: start: 20120127
  2. TYLENOL (CAPLET) [Concomitant]
  3. CITALOPRAM [Concomitant]
     Dosage: 10 MG, QD
     Route: 048
  4. IBUPROFEN [Concomitant]
     Route: 048
  5. EXCEDRIN (MIGRAINE) [Concomitant]
     Indication: HEADACHE
  6. METFORMIN HCL [Concomitant]
     Dosage: 850 MG, BID
     Route: 048

REACTIONS (8)
  - HYPERTENSION [None]
  - COUGH [None]
  - HEART RATE INCREASED [None]
  - CHILLS [None]
  - NASAL CONGESTION [None]
  - PYREXIA [None]
  - CEREBROVASCULAR ACCIDENT [None]
  - DYSPNOEA [None]
